FAERS Safety Report 14938173 (Version 1)
Quarter: 2018Q2

REPORT INFORMATION
  Report Type: Spontaneous
  Country: FR (occurrence: FR)
  Receive Date: 20180525
  Receipt Date: 20180525
  Transmission Date: 20180711
  Serious: Yes (Other)
  Sender: FDA-Public Use
  Company Number: FR-MERCK KGAA-2048461

PATIENT
  Age: 30 Year
  Sex: Female

DRUGS (1)
  1. NOVOTHYROX [Suspect]
     Active Substance: LEVOTHYROXINE SODIUM
     Indication: PRODUCT USED FOR UNKNOWN INDICATION

REACTIONS (30)
  - Renal pain [None]
  - Psychiatric symptom [None]
  - Haematocrit decreased [None]
  - Dyspnoea [None]
  - High density lipoprotein decreased [None]
  - Insomnia [None]
  - Disturbance in attention [None]
  - Alopecia [None]
  - Emotional distress [None]
  - Mental impairment [None]
  - Memory impairment [None]
  - Personality change [None]
  - Blood creatine increased [None]
  - Blood iron decreased [None]
  - Haemoglobin decreased [None]
  - Mood swings [None]
  - Sleep disorder [None]
  - Feeling abnormal [None]
  - Blood thyroid stimulating hormone abnormal [None]
  - Crying [None]
  - Serum ferritin decreased [Recovered/Resolved]
  - Neutrophil count decreased [Recovered/Resolved]
  - Muscle spasms [None]
  - Headache [None]
  - Adnexa uteri pain [None]
  - Gait disturbance [None]
  - Fatigue [None]
  - Irritability [None]
  - Eosinophil count decreased [None]
  - Poor quality sleep [None]

NARRATIVE: CASE EVENT DATE: 20170216
